FAERS Safety Report 7384802-8 (Version None)
Quarter: 2011Q1

REPORT INFORMATION
  Report Type: 
  Country: None (occurrence: None)
  Receive Date: 20110330
  Receipt Date: 20110325
  Transmission Date: 20110831
  Serious: Yes (Hospitalization)
  Sender: FDA-Public Use
  Company Number: GB-PFIZER INC-2011038070

PATIENT
  Age: 71 Year
  Sex: Female

DRUGS (4)
  1. IBUPROFEN [Suspect]
     Indication: RHEUMATOID ARTHRITIS
     Dosage: 400 MG, 2X/DAY
     Route: 048
     Dates: start: 20081110, end: 20081224
  2. OMEPRAZOLE [Concomitant]
     Dosage: 20 MG, 1X/DAY
     Dates: start: 19971215, end: 20110214
  3. CELECOXIB [Concomitant]
     Indication: RHEUMATOID ARTHRITIS
     Dosage: 100 MG, 2X/DAY
     Dates: start: 20081224, end: 20110122
  4. FEXOFENADINE [Concomitant]
     Dosage: UNK
     Dates: start: 20090903

REACTIONS (1)
  - ACUTE MYOCARDIAL INFARCTION [None]
